FAERS Safety Report 7190634-6 (Version None)
Quarter: 2010Q4

REPORT INFORMATION
  Report Type: 
  Country: None (occurrence: None)
  Receive Date: 20101221
  Receipt Date: 20101221
  Transmission Date: 20110411
  Serious: No
  Sender: FDA-Public Use
  Company Number: None

PATIENT
  Age: 82 Year
  Sex: Male
  Weight: 95.2554 kg

DRUGS (1)
  1. METFORMIN HCL [Suspect]

REACTIONS (2)
  - LACTIC ACIDOSIS [None]
  - PAIN IN EXTREMITY [None]
